FAERS Safety Report 4487729-4 (Version None)
Quarter: 2004Q4

REPORT INFORMATION
  Report Type: 
  Country: None (occurrence: None)
  Receive Date: 20041025
  Receipt Date: 20041012
  Transmission Date: 20050328
  Serious: Yes (Hospitalization)
  Sender: FDA-Public Use
  Company Number: HQWYE755014OCT04

PATIENT
  Age: 47 Year
  Sex: Female

DRUGS (12)
  1. RHEUMATREX [Suspect]
     Indication: RHEUMATOID ARTHRITIS
     Dosage: 4 MG 1X PER 1 WK; 6 MG 1X PER 1 WK
     Route: 048
     Dates: start: 20001217, end: 20030204
  2. RHEUMATREX [Suspect]
     Indication: RHEUMATOID ARTHRITIS
     Dosage: 4 MG 1X PER 1 WK; 6 MG 1X PER 1 WK
     Route: 048
     Dates: start: 20030205, end: 20040113
  3. PL (CAFFEINE/PARACETAMOL/PROMETHAZINE METHYLENE DISALICYLATE/SALICYLAM [Concomitant]
  4. LOXONIN (LOXOPROFEN SODIUM) [Concomitant]
  5. PREDNISOLONE [Concomitant]
  6. SELBEX (TEPRENONE) [Concomitant]
  7. URSO (UROSEOXYCHOLIC ACID) [Concomitant]
  8. GLYCYRON (AMINOACETIC ACID/DL-METHIONINE/GLYCYRRHIZIC ACID) [Concomitant]
  9. MINOMYCIN (MINOCYCINE, TABLET) [Suspect]
     Indication: NASOPHARYNGITIS
     Dosage: 2 TABLET 1X PER 1 DAY
     Route: 048
  10. REMICADE [Suspect]
     Indication: RHEUMATOID ARTHRITIS
     Dosage: 3 MG/KG/DAY
     Route: 042
     Dates: start: 20031022, end: 20031022
  11. REMICADE [Suspect]
     Indication: RHEUMATOID ARTHRITIS
     Dosage: 3 MG/KG/DAY
     Route: 042
     Dates: start: 20031104, end: 20031104
  12. REMICADE [Suspect]
     Indication: RHEUMATOID ARTHRITIS
     Dosage: 3 MG/KG/DAY
     Route: 042
     Dates: start: 20031216, end: 20031216

REACTIONS (6)
  - ABASIA [None]
  - ALANINE AMINOTRANSFERASE INCREASED [None]
  - ASPARTATE AMINOTRANSFERASE INCREASED [None]
  - BLOOD LACTATE DEHYDROGENASE INCREASED [None]
  - HEPATIC FUNCTION ABNORMAL [None]
  - POLYMYOSITIS [None]
